FAERS Safety Report 7633294-X (Version None)
Quarter: 2011Q3

REPORT INFORMATION
  Report Type: 
  Country: None (occurrence: None)
  Receive Date: 20110725
  Receipt Date: 20110715
  Transmission Date: 20111222
  Serious: Yes (Disabling, Other)
  Sender: FDA-Public Use
  Company Number: IE-ABBOTT-11P-229-0733685-00

PATIENT
  Sex: Female
  Weight: 54 kg

DRUGS (1)
  1. HUMIRA [Suspect]
     Indication: COLITIS ULCERATIVE
     Route: 058
     Dates: start: 20081202, end: 20110602

REACTIONS (4)
  - PARAESTHESIA [None]
  - MULTIPLE SCLEROSIS [None]
  - DIPLOPIA [None]
  - MUSCLE SPASMS [None]
